FAERS Safety Report 15899970 (Version 1)
Quarter: 2019Q1

REPORT INFORMATION
  Report Type: Spontaneous
  Country: JP (occurrence: JP)
  Receive Date: 20190201
  Receipt Date: 20190201
  Transmission Date: 20190417
  Serious: Yes (Hospitalization)
  Sender: FDA-Public Use
  Company Number: JP-009507513-1811JPN001613J

PATIENT
  Sex: Male

DRUGS (3)
  1. BELSOMRA [Suspect]
     Active Substance: SUVOREXANT
     Dosage: 20 MILLIGRAM, 20 MG AT 9 O^CLOCK IN THE EVENING, ANOTHER 20 MG AFTER 1 O^CLOCK AT MIDNIGHT
     Route: 048
     Dates: start: 20190109, end: 20190110
  2. SILECE [Concomitant]
     Active Substance: FLUNITRAZEPAM
     Dosage: UNK
     Route: 048
  3. BELSOMRA [Suspect]
     Active Substance: SUVOREXANT
     Indication: INSOMNIA
     Dosage: 20 MILLIGRAM, PRN
     Route: 048

REACTIONS (7)
  - Middle insomnia [Unknown]
  - Feeling abnormal [Unknown]
  - Adverse event [Unknown]
  - Accidental overdose [Unknown]
  - Initial insomnia [Unknown]
  - Inappropriate schedule of product administration [Unknown]
  - Dizziness [Unknown]

NARRATIVE: CASE EVENT DATE: 20190109
